FAERS Safety Report 4763166-X (Version None)
Quarter: 2005Q3

REPORT INFORMATION
  Report Type: 
  Country: None (occurrence: None)
  Receive Date: 20050902
  Receipt Date: 20050825
  Transmission Date: 20060218
  Serious: Yes (Other)
  Sender: FDA-Public Use
  Company Number: 12185

PATIENT

DRUGS (3)
  1. VINCRISTINE [Suspect]
     Indication: BRAIN NEOPLASM
  2. PROCARBAZINE [Suspect]
     Indication: BRAIN NEOPLASM
  3. LOMUSTINE [Suspect]
     Indication: BRAIN NEOPLASM

REACTIONS (1)
  - STATUS EPILEPTICUS [None]
